FAERS Safety Report 4745946-X (Version None)
Quarter: 2005Q3

REPORT INFORMATION
  Report Type: 
  Country: None (occurrence: None)
  Receive Date: 20050816
  Receipt Date: 20050810
  Transmission Date: 20060218
  Serious: Yes (Disabling)
  Sender: FDA-Public Use
  Company Number: GB-GLAXOSMITHKLINE-B0390523A

PATIENT
  Age: 23 Year
  Sex: Female
  Weight: 70 kg

DRUGS (4)
  1. MALARONE [Suspect]
     Indication: MALARIA PROPHYLAXIS
     Route: 048
     Dates: start: 20050724, end: 20050728
  2. DIANETTE [Concomitant]
     Indication: ACNE
     Route: 048
     Dates: start: 20041201
  3. SERTRALINE HCL [Concomitant]
     Indication: DEPRESSION
     Dosage: 75MG PER DAY
     Route: 048
     Dates: start: 20050101
  4. BRICANYL [Concomitant]

REACTIONS (4)
  - EYE IRRITATION [None]
  - RETINOPATHY [None]
  - UVEITIS [None]
  - VISUAL ACUITY REDUCED [None]
